FAERS Safety Report 4615864-6 (Version None)
Quarter: 2005Q2

REPORT INFORMATION
  Report Type: 
  Country: None (occurrence: None)
  Receive Date: 20050311
  Receipt Date: 20041104
  Transmission Date: 20051028
  Serious: No
  Sender: FDA-Public Use
  Company Number: 2004-BP-11348BP

PATIENT
  Age: 77 Year
  Sex: Female

DRUGS (5)
  1. SPIRIVA [Suspect]
     Indication: CHRONIC OBSTRUCTIVE PULMONARY DISEASE
     Dosage: 18 MCG (18 MCG), IH;  18 MCG (18 MCG), IH
     Route: 055
     Dates: start: 20040701, end: 20040701
  2. SPIRIVA [Suspect]
     Indication: CHRONIC OBSTRUCTIVE PULMONARY DISEASE
     Dosage: 18 MCG (18 MCG), IH;  18 MCG (18 MCG), IH
     Route: 055
     Dates: start: 20041029, end: 20041104
  3. ALBUTEROL [Suspect]
  4. RANITIDINE [Concomitant]
  5. MULTIVITAMIN [Concomitant]

REACTIONS (3)
  - DRUG INEFFECTIVE [None]
  - TREMOR [None]
  - URTICARIA [None]
